FAERS Safety Report 14119724 (Version 1)
Quarter: 2017Q4

REPORT INFORMATION
  Report Type: Spontaneous
  Country: US (occurrence: US)
  Receive Date: 20171024
  Receipt Date: 20171024
  Transmission Date: 20180321
  Serious: Yes (Other)
  Sender: FDA-Public Use
  Company Number: None

PATIENT
  Sex: Female
  Weight: 54 kg

DRUGS (6)
  1. ATENOLOL. [Concomitant]
     Active Substance: ATENOLOL
  2. SIMVASTATIN. [Concomitant]
     Active Substance: SIMVASTATIN
  3. CALCIUM + D [Concomitant]
     Active Substance: CALCIUM\VITAMIN D
  4. FOLIC ACID. [Concomitant]
     Active Substance: FOLIC ACID
  5. CAPECITABINE. [Suspect]
     Active Substance: CAPECITABINE
     Indication: COLON CANCER
     Route: 048
     Dates: start: 20170926
  6. LEVOTHYROXINE. [Concomitant]
     Active Substance: LEVOTHYROXINE

REACTIONS (2)
  - Therapy cessation [None]
  - Fatigue [None]
